FAERS Safety Report 6877548-3 (Version None)
Quarter: 2010Q3

REPORT INFORMATION
  Report Type: 
  Country: None (occurrence: None)
  Receive Date: 20100727
  Receipt Date: 20091204
  Transmission Date: 20110219
  Serious: No
  Sender: FDA-Public Use
  Company Number: US-ABBOTT-09P-163-0613339-00

PATIENT
  Sex: Female
  Weight: 70.824 kg

DRUGS (3)
  1. SYNTHROID [Suspect]
     Indication: HYPOTHYROIDISM
     Dates: start: 19920101
  2. ASPIRIN [Concomitant]
     Indication: PRODUCT USED FOR UNKNOWN INDICATION
  3. CLIMARA [Concomitant]
     Indication: MENOPAUSE
     Dosage: PATCH
     Route: 062

REACTIONS (7)
  - AMNESIA [None]
  - ASTHENIA [None]
  - HYPERSOMNIA [None]
  - HYPOPHAGIA [None]
  - SENSATION OF HEAVINESS [None]
  - THYROID FUNCTION TEST ABNORMAL [None]
  - WEIGHT INCREASED [None]
